FAERS Safety Report 5361103-0 (Version None)
Quarter: 2007Q2

REPORT INFORMATION
  Report Type: 
  Country: None (occurrence: None)
  Receive Date: 20070530
  Receipt Date: 20070209
  Transmission Date: 20071010
  Serious: No
  Sender: FDA-Public Use
  Company Number: 2007PV029865

PATIENT
  Age: 72 Year
  Sex: Female
  Weight: 106.1417 kg

DRUGS (8)
  1. BYETTA [Suspect]
     Indication: DIABETES MELLITUS NON-INSULIN-DEPENDENT
     Dosage: 5;10;5 MCG;BID;SC
     Route: 058
     Dates: start: 20061201, end: 20070101
  2. BYETTA [Suspect]
     Indication: DIABETES MELLITUS NON-INSULIN-DEPENDENT
     Dosage: 5;10;5 MCG;BID;SC
     Route: 058
     Dates: start: 20070101, end: 20070201
  3. BYETTA [Suspect]
     Indication: DIABETES MELLITUS NON-INSULIN-DEPENDENT
     Dosage: 5;10;5 MCG;BID;SC
     Route: 058
     Dates: start: 20070201
  4. ACTOS [Concomitant]
  5. FOSAMAX [Concomitant]
  6. DIOVAN [Concomitant]
  7. VYTORIN [Concomitant]
  8. HYDROCHLOROTHIAZIDE [Concomitant]

REACTIONS (5)
  - ABDOMINAL DISTENSION [None]
  - DEPRESSED LEVEL OF CONSCIOUSNESS [None]
  - DYSPHONIA [None]
  - MEMORY IMPAIRMENT [None]
  - WEIGHT DECREASED [None]
